FAERS Safety Report 23356741 (Version 2)
Quarter: 2024Q1

REPORT INFORMATION
  Report Type: Other
  Country: US (occurrence: None)
  Receive Date: 20240102
  Receipt Date: 20240105
  Transmission Date: 20240410
  Serious: Yes (Hospitalization)
  Sender: FDA-Public Use
  Company Number: US-ROCHE-3482172

PATIENT
  Age: 71 Year
  Sex: Female

DRUGS (3)
  1. XOLAIR [Suspect]
     Active Substance: OMALIZUMAB
     Indication: Urticaria
     Dosage: INJECT 1ML (150MG) SUBCUTANEOUSLY EVERY 28 DAY(S)
     Route: 058
  2. XOLAIR [Suspect]
     Active Substance: OMALIZUMAB
  3. XOLAIR [Suspect]
     Active Substance: OMALIZUMAB

REACTIONS (4)
  - Respiratory failure [Unknown]
  - Asthenia [Unknown]
  - Diverticulitis [Unknown]
  - Off label use [Unknown]
